FAERS Safety Report 8877055 (Version 1)
Quarter: 2012Q4

REPORT INFORMATION
  Report Type: Spontaneous
  Country: US (occurrence: None)
  Receive Date: 20121101
  Receipt Date: 20121101
  Transmission Date: 20130627
  Serious: Yes (Life-Threatening)
  Sender: FDA-Public Use
  Company Number: None

PATIENT
  Age: 10 Month
  Sex: Male

DRUGS (4)
  1. HYLAND^S RESTFUL LEGS [Suspect]
     Indication: NASOPHARYNGITIS
     Dosage: 1/2 TEASPOON ONCE
  2. ELDERBERRY [Concomitant]
  3. COLLOIDAL SILVER [Concomitant]
  4. VITAMINS [Concomitant]

REACTIONS (2)
  - Dyspnoea [None]
  - Bronchospasm [None]
